FAERS Safety Report 11923739 (Version 1)
Quarter: 2016Q1

REPORT INFORMATION
  Report Type: Spontaneous
  Country: US (occurrence: US)
  Receive Date: 20160118
  Receipt Date: 20160118
  Transmission Date: 20160526
  Serious: No
  Sender: FDA-Public Use
  Company Number: US-PFIZER INC-2015468703

PATIENT
  Age: 64 Year
  Sex: Female

DRUGS (2)
  1. IBRANCE [Suspect]
     Active Substance: PALBOCICLIB
     Dosage: 125 MG, CYCLIC (21 DAYS ON 7 DAYS OFF)
     Dates: start: 20150401
  2. LETROZOLE. [Suspect]
     Active Substance: LETROZOLE
     Dosage: 1 DF, DAILY

REACTIONS (4)
  - Red blood cell count decreased [Unknown]
  - Alopecia [Unknown]
  - White blood cell count decreased [Unknown]
  - Rash [Unknown]
